FAERS Safety Report 24066327 (Version 1)
Quarter: 2024Q3

REPORT INFORMATION
  Report Type: Spontaneous
  Country: FR (occurrence: FR)
  Receive Date: 20240709
  Receipt Date: 20240709
  Transmission Date: 20241016
  Serious: Yes (Other)
  Sender: BAXTER
  Company Number: None

PATIENT
  Age: 82 Year
  Sex: Female
  Weight: 56 kg

DRUGS (19)
  1. PROPOFOL [Suspect]
     Active Substance: PROPOFOL
     Indication: General anaesthesia
     Dosage: 120 ML, ONCE TOTAL
     Route: 042
     Dates: start: 20230821, end: 20230821
  2. KETAMINE [Suspect]
     Active Substance: KETAMINE
     Indication: General anaesthesia
     Dosage: 5 ML, ONCE TOTAL
     Route: 042
     Dates: start: 20230821, end: 20230821
  3. ROCURONIUM BROMIDE [Suspect]
     Active Substance: ROCURONIUM BROMIDE
     Indication: General anaesthesia
     Dosage: 70 MG, ONCE TOTAL
     Route: 042
     Dates: start: 20230821, end: 20230821
  4. TAZOBACTAM SODIUM [Suspect]
     Active Substance: TAZOBACTAM SODIUM
     Indication: Peritonitis
     Route: 042
     Dates: start: 20230821, end: 20230821
  5. SUFENTANIL [Suspect]
     Active Substance: SUFENTANIL
     Indication: General anaesthesia
     Dosage: 20 UG, ONCE TOTAL
     Route: 042
     Dates: start: 20230821, end: 20230821
  6. IOBITRIDOL [Suspect]
     Active Substance: IOBITRIDOL
     Indication: Computerised tomogram
     Dosage: 80 ML, ONCE TOTAL, XENETIX 350 (350 MG IODINE/ML), SOLUTION INJECTABLE
     Route: 042
     Dates: start: 20230821, end: 20230821
  7. PIPERACILLIN [Suspect]
     Active Substance: PIPERACILLIN
     Indication: Antibiotic prophylaxis
     Dosage: (PIPERACILLIN BASE)
     Route: 042
     Dates: start: 20230821, end: 20230821
  8. CODEINE PHOSPHATE [Suspect]
     Active Substance: CODEINE PHOSPHATE
     Indication: Gastrointestinal stoma complication
     Dosage: 150 ML, ONCE DAILY, (0.1 PERCENT, SYRUP)
     Route: 048
     Dates: start: 20230817, end: 20230821
  9. PANTOPRAZOLE [Concomitant]
     Active Substance: PANTOPRAZOLE
     Route: 065
  10. RACECADOTRIL [Concomitant]
     Active Substance: RACECADOTRIL
     Route: 065
  11. ACETAMINOPHEN [Concomitant]
     Active Substance: ACETAMINOPHEN
     Route: 065
  12. INNOHEP [Concomitant]
     Active Substance: TINZAPARIN SODIUM
     Dosage: (MAMMAL/PORK/INTESTINAL MUCOSA)
     Route: 065
  13. FOLIC ACID [Concomitant]
     Active Substance: FOLIC ACID
     Route: 065
  14. SMECTA [Concomitant]
     Active Substance: MONTMORILLONITE
     Route: 065
  15. LEVOTHYROXINE [Concomitant]
     Active Substance: LEVOTHYROXINE\LEVOTHYROXINE SODIUM
     Route: 065
  16. FERROUS FUMARATE [Concomitant]
     Active Substance: FERROUS FUMARATE
     Route: 065
  17. LOPERAMIDE HYDROCHLORIDE [Concomitant]
     Active Substance: LOPERAMIDE HYDROCHLORIDE
     Route: 065
  18. ALPRAZOLAM [Concomitant]
     Active Substance: ALPRAZOLAM
     Route: 065
  19. NOREPINEPHRINE [Concomitant]
     Active Substance: NOREPINEPHRINE\NOREPINEPHRINE BITARTRATE
     Route: 065

REACTIONS (1)
  - Rash [Recovered/Resolved]

NARRATIVE: CASE EVENT DATE: 20230822
